FAERS Safety Report 7126414-7 (Version None)
Quarter: 2010Q4

REPORT INFORMATION
  Report Type: 
  Country: None (occurrence: None)
  Receive Date: 20101129
  Receipt Date: 20101118
  Transmission Date: 20110411
  Serious: Yes (Hospitalization)
  Sender: FDA-Public Use
  Company Number: IT-JNJFOC-20101106258

PATIENT
  Sex: Female

DRUGS (2)
  1. LEVOXACIN [Suspect]
     Indication: CYSTITIS HAEMORRHAGIC
     Route: 048
  2. MONURIL [Concomitant]
     Route: 065

REACTIONS (4)
  - ANGIOEDEMA [None]
  - ERYTHEMA [None]
  - RESPIRATORY DISORDER [None]
  - STRIDOR [None]
